FAERS Safety Report 10145984 (Version 2)
Quarter: 2014Q2

REPORT INFORMATION
  Report Type: Spontaneous
  Country: FR (occurrence: FR)
  Receive Date: 20140501
  Receipt Date: 20140521
  Transmission Date: 20141212
  Serious: Yes (Hospitalization)
  Sender: FDA-Public Use
  Company Number: PHHY2014FR052839

PATIENT
  Age: 75 Year
  Sex: Male

DRUGS (4)
  1. EXELON [Suspect]
     Indication: DEMENTIA ALZHEIMER^S TYPE
     Dosage: UNK UKN, UNK
     Route: 062
  2. OTHER ANTIHYPERTENSIVES [Suspect]
     Indication: HYPERTENSION
     Dosage: UNK UKN, UNK
  3. L-DOPA [Concomitant]
     Indication: PARKINSON^S DISEASE
     Dosage: UNK UKN, UNK
  4. AMLOR [Concomitant]
     Dosage: UNK UKN, UNK

REACTIONS (2)
  - Diarrhoea [Recovering/Resolving]
  - Dehydration [Recovering/Resolving]
